FAERS Safety Report 21032930 (Version 1)
Quarter: 2022Q3

REPORT INFORMATION
  Report Type: Spontaneous
  Country: US (occurrence: US)
  Receive Date: 20220701
  Receipt Date: 20220701
  Transmission Date: 20221027
  Serious: Yes (Other)
  Sender: FDA-Public Use
  Company Number: US-RECKITT BENCKISER HEALTHCARE INT LIMITED-RB-091648-2022

PATIENT
  Age: 92 Year
  Sex: Female

DRUGS (1)
  1. MUCINEX MAXIMUM STRENGTH [Suspect]
     Active Substance: GUAIFENESIN
     Indication: Cough
     Dosage: 1 DOSAGE FORM, QD
     Route: 048
     Dates: start: 20220618, end: 20220618

REACTIONS (1)
  - Haemoptysis [Not Recovered/Not Resolved]

NARRATIVE: CASE EVENT DATE: 20220618
